FAERS Safety Report 15537709 (Version 1)
Quarter: 2018Q4

REPORT INFORMATION
  Report Type: Spontaneous
  Country: US (occurrence: US)
  Receive Date: 20181022
  Receipt Date: 20181022
  Transmission Date: 20190205
  Serious: Yes (Other)
  Sender: FDA-Public Use
  Company Number: None

PATIENT
  Age: 50 Year
  Sex: Female
  Weight: 108 kg

DRUGS (12)
  1. DENOSUMAB [Concomitant]
     Active Substance: DENOSUMAB
     Dates: start: 20170519
  2. SERTRALINE [Concomitant]
     Active Substance: SERTRALINE HYDROCHLORIDE
  3. PALBOCICLIB [Concomitant]
     Active Substance: PALBOCICLIB
     Dates: start: 20170519
  4. WELLBUTRIN SR [Concomitant]
     Active Substance: BUPROPION HYDROCHLORIDE
  5. FLUTICASONE NS [Concomitant]
  6. GOSERELIN [Concomitant]
     Active Substance: GOSERELIN
     Dates: start: 20170519
  7. OMEPRAZOLE. [Concomitant]
     Active Substance: OMEPRAZOLE
  8. VITAMIN D3 [Concomitant]
     Active Substance: CHOLECALCIFEROL
  9. CALCIUM CARBONATE. [Concomitant]
     Active Substance: CALCIUM CARBONATE
  10. LETROZOLE. [Suspect]
     Active Substance: LETROZOLE
     Indication: HER-2 POSITIVE BREAST CANCER
     Route: 048
     Dates: start: 20170519
  11. GLUCOSAMINE [Concomitant]
     Active Substance: GLUCOSAMINE
  12. VITAMIN E [Concomitant]
     Active Substance: .ALPHA.-TOCOPHEROL

REACTIONS (1)
  - Thrombophlebitis [None]

NARRATIVE: CASE EVENT DATE: 20181021
